FAERS Safety Report 14382919 (Version 2)
Quarter: 2018Q1

REPORT INFORMATION
  Report Type: Spontaneous
  Country: US (occurrence: US)
  Receive Date: 20180114
  Receipt Date: 20180117
  Transmission Date: 20180509
  Serious: Yes (Death, Life-Threatening, Hospitalization)
  Sender: FDA-Public Use
  Company Number: US-ASTRAZENECA-2018SE03794

PATIENT
  Age: 210 Day
  Sex: Male
  Weight: 6.9 kg

DRUGS (4)
  1. SYNAGIS [Suspect]
     Active Substance: PALIVIZUMAB
     Dosage: 15MG/KG
     Route: 030
     Dates: start: 20171105, end: 20180105
  2. SYNAGIS [Suspect]
     Active Substance: PALIVIZUMAB
     Dosage: 103.0MG UNKNOWN
     Route: 030
     Dates: start: 20180105, end: 20180105
  3. POLY VI SOL [Concomitant]
  4. SYNAGIS [Suspect]
     Active Substance: PALIVIZUMAB
     Route: 030
     Dates: start: 20171204, end: 20171204

REACTIONS (5)
  - Mouth haemorrhage [Unknown]
  - Epistaxis [Unknown]
  - Respiratory arrest [Unknown]
  - Death [Fatal]
  - Malaise [Fatal]

NARRATIVE: CASE EVENT DATE: 20180107
